FAERS Safety Report 9037960 (Version 1)
Quarter: 2013Q1

REPORT INFORMATION
  Report Type: Spontaneous
  Country: AR (occurrence: AR)
  Receive Date: 20130129
  Receipt Date: 20130129
  Transmission Date: 20140127
  Serious: Yes (Hospitalization)
  Sender: FDA-Public Use
  Company Number: AR-JNJFOC-20130111340

PATIENT
  Age: 34 Year
  Sex: Female

DRUGS (6)
  1. LEVOFLOXACIN [Suspect]
     Indication: TUBERCULOSIS
     Route: 065
  2. CYCLOSERINE [Suspect]
     Indication: TUBERCULOSIS
     Route: 065
  3. CYCLOSERINE [Suspect]
     Indication: TUBERCULOSIS
     Route: 065
  4. ETHIONAMIDE [Suspect]
     Indication: TUBERCULOSIS
     Route: 065
  5. PARA-AMINOSALICYLIC ACID [Suspect]
     Indication: TUBERCULOSIS
     Route: 065
  6. MOXIFLOXACIN [Suspect]
     Indication: TUBERCULOSIS
     Route: 065

REACTIONS (1)
  - Drug reaction with eosinophilia and systemic symptoms [Recovered/Resolved]
